FAERS Safety Report 7589176-5 (Version None)
Quarter: 2011Q2

REPORT INFORMATION
  Report Type: 
  Country: None (occurrence: None)
  Receive Date: 20110627
  Receipt Date: 20110617
  Transmission Date: 20111010
  Serious: Yes (Death)
  Sender: FDA-Public Use
  Company Number: UTC-007997

PATIENT
  Age: 63 Year
  Sex: Female

DRUGS (3)
  1. VIAGRA [Concomitant]
  2. TRACLEER [Concomitant]
  3. REMODULIN [Suspect]
     Indication: PULMONARY HYPERTENSION
     Dosage: 48.96 UG/KG (0.034 UG/KG, 1 IN 1 MIN), INTRAVENOUS
     Route: 042
     Dates: start: 20091218

REACTIONS (1)
  - DEATH [None]
